FAERS Safety Report 7756543-6 (Version None)
Quarter: 2011Q3

REPORT INFORMATION
  Report Type: 
  Country: None (occurrence: None)
  Receive Date: 20110916
  Receipt Date: 20110907
  Transmission Date: 20111222
  Serious: Yes (Other)
  Sender: FDA-Public Use
  Company Number: US-UCBSA-041015

PATIENT
  Sex: Female
  Weight: 56.7 kg

DRUGS (7)
  1. SIMVASTATIN [Concomitant]
     Indication: BLOOD CHOLESTEROL
     Dosage: 20 MG
     Route: 048
  2. ACETAMINOPHEN [Concomitant]
  3. NAPROXEN [Concomitant]
  4. URISODIOL [Concomitant]
     Indication: CHOLANGITIS SCLEROSING
     Route: 048
  5. CIMZIA [Suspect]
     Indication: CROHN'S DISEASE
     Dosage: PREVIOUS DOSE: ON 03-MAR-2011 400 MG EVERY 2 WEEKS
     Route: 058
     Dates: start: 20110421
  6. ASCORBIC ACID [Concomitant]
  7. ESTRACE VAG [Concomitant]
     Dosage: 0.1 MG

REACTIONS (1)
  - LICHEN SCLEROSUS [None]
